FAERS Safety Report 10683130 (Version 5)
Quarter: 2015Q1

REPORT INFORMATION
  Report Type: Report from Study
  Country: US (occurrence: US)
  Receive Date: 20141230
  Receipt Date: 20150210
  Transmission Date: 20150720
  Serious: Yes (Other)
  Sender: FDA-Public Use
  Company Number: US-GLAXOSMITHKLINE-A1027148A

PATIENT
  Sex: Female

DRUGS (2)
  1. SALBUTAMOL SULPHATE [Suspect]
     Active Substance: ALBUTEROL SULFATE
     Indication: CHRONIC OBSTRUCTIVE PULMONARY DISEASE
     Route: 065
  2. FLUTICASONE PROPIONATE+SALMETEROL XINAFOATE [Suspect]
     Active Substance: FLUTICASONE PROPIONATE\SALMETEROL XINAFOATE
     Indication: CHRONIC OBSTRUCTIVE PULMONARY DISEASE
     Route: 065

REACTIONS (11)
  - Thyroidectomy [Unknown]
  - Pain [Unknown]
  - Lung disorder [Not Recovered/Not Resolved]
  - Dyspnoea [Unknown]
  - Abdominal distension [Unknown]
  - Liver disorder [Unknown]
  - Chronic obstructive pulmonary disease [Unknown]
  - Blood glucose abnormal [Unknown]
  - Furuncle [Unknown]
  - Cyst [Unknown]
  - Influenza [Unknown]
